FAERS Safety Report 25742984 (Version 1)
Quarter: 2025Q3

REPORT INFORMATION
  Report Type: Spontaneous
  Country: CN (occurrence: CN)
  Receive Date: 20250830
  Receipt Date: 20250830
  Transmission Date: 20251021
  Serious: Yes (Death, Life-Threatening, Hospitalization, Disabling, Other)
  Sender: AMGEN
  Company Number: CN-AMGEN-CHNSP2025168478

PATIENT

DRUGS (1)
  1. NPLATE [Suspect]
     Active Substance: ROMIPLOSTIM
     Indication: Thrombocytopenia
     Route: 065

REACTIONS (34)
  - Death [Fatal]
  - Unevaluable event [Unknown]
  - Pulmonary embolism [Unknown]
  - Thrombosis [Unknown]
  - Deep vein thrombosis [Unknown]
  - Cerebrovascular accident [Unknown]
  - Acute myocardial infarction [Unknown]
  - Cerebral infarction [Unknown]
  - Portal vein thrombosis [Unknown]
  - Portosplenomesenteric venous thrombosis [Unknown]
  - Renal embolism [Unknown]
  - Visceral venous thrombosis [Unknown]
  - Mesenteric vein thrombosis [Unknown]
  - Embolism [Unknown]
  - Transient ischaemic attack [Unknown]
  - Antiphospholipid syndrome [Unknown]
  - Cerebral venous sinus thrombosis [Unknown]
  - Cerebral venous thrombosis [Unknown]
  - Pulmonary thrombosis [Unknown]
  - Disseminated intravascular coagulation [Unknown]
  - Embolism arterial [Unknown]
  - Cerebral thrombosis [Unknown]
  - Acute coronary syndrome [Unknown]
  - Shunt occlusion [Unknown]
  - Pulmonary infarction [Unknown]
  - Embolic stroke [Unknown]
  - Embolism venous [Unknown]
  - Splenic infarction [Unknown]
  - Vena cava thrombosis [Unknown]
  - Venous thrombosis [Unknown]
  - Arterial thrombosis [Unknown]
  - Arterial occlusive disease [Unknown]
  - Peripheral arterial occlusive disease [Unknown]
  - Thrombophlebitis [Unknown]
